FAERS Safety Report 4386900-X (Version None)
Quarter: 2004Q2

REPORT INFORMATION
  Report Type: 
  Country: None (occurrence: None)
  Receive Date: 20040628
  Receipt Date: 20040628
  Transmission Date: 20050107
  Serious: Yes (Other)
  Sender: FDA-Public Use
  Company Number: None

PATIENT
  Age: 39 Year
  Sex: Female
  Weight: 144.2439 kg

DRUGS (2)
  1. DILANTIN [Suspect]
     Indication: CONVULSION
     Dosage: 2 MORN, 2 NOON 3 BED
     Dates: start: 19960101, end: 20040101
  2. PHENYTOIN [Suspect]
     Indication: CONVULSION
     Dosage: 2 MORN, 2 NOON 3 BED

REACTIONS (1)
  - GINGIVAL HYPERPLASIA [None]
